FAERS Safety Report 16932842 (Version 2)
Quarter: 2019Q4

REPORT INFORMATION
  Report Type: Spontaneous
  Country: US (occurrence: US)
  Receive Date: 20191018
  Receipt Date: 20191023
  Transmission Date: 20200122
  Serious: No
  Sender: FDA-Public Use
  Company Number: US-TEVA-2019-US-1123340

PATIENT
  Age: 75 Year
  Sex: Female

DRUGS (3)
  1. CEFALEXIN TEVA [Suspect]
     Active Substance: CEPHALEXIN
     Indication: OTITIS MEDIA
  2. CEFALEXIN TEVA [Suspect]
     Active Substance: CEPHALEXIN
     Indication: TOOTH EXTRACTION
     Route: 065
     Dates: start: 20191010, end: 20191011
  3. CEFALEXIN TEVA [Suspect]
     Active Substance: CEPHALEXIN
     Indication: SINUSITIS

REACTIONS (4)
  - Chest discomfort [Recovered/Resolved]
  - Drug ineffective [Unknown]
  - Balance disorder [Unknown]
  - Asthenia [Unknown]

NARRATIVE: CASE EVENT DATE: 20191010
